FAERS Safety Report 10203855 (Version 1)
Quarter: 2014Q2

REPORT INFORMATION
  Report Type: Spontaneous
  Country: US (occurrence: None)
  Receive Date: 20140523
  Receipt Date: 20140523
  Transmission Date: 20141212
  Serious: Yes (Other)
  Sender: FDA-Public Use
  Company Number: FK201401936

PATIENT
  Age: 64 Year
  Sex: Female

DRUGS (3)
  1. GEMCITABINE [Suspect]
     Indication: CHOLANGIOCARCINOMA
     Dosage: (NOT OTHERWISE SPECIFIED)
     Route: 042
  2. CISPLATIN (CISPLATIN) [Concomitant]
  3. OXALIPLATIN (OXALIPLATIN) [Concomitant]

REACTIONS (10)
  - Renal failure [None]
  - Retinopathy [None]
  - Retinal haemorrhage [None]
  - Anaemia [None]
  - Thrombocytopenia [None]
  - Haemodialysis [None]
  - Carotid artery stenosis [None]
  - General physical health deterioration [None]
  - Retinal exudates [None]
  - Arteriosclerotic retinopathy [None]
